FAERS Safety Report 9938579 (Version 1)
Quarter: 2014Q1

REPORT INFORMATION
  Report Type: Report from Study
  Country: US (occurrence: US)
  Receive Date: 20140303
  Receipt Date: 20140303
  Transmission Date: 20141002
  Serious: No
  Sender: FDA-Public Use
  Company Number: US-B.I. PHARMACEUTICALS,INC./RIDGEFIELD-2014-BI-07817BP

PATIENT
  Age: 64 Year
  Sex: Male

DRUGS (3)
  1. SPIRIVA [Suspect]
     Indication: CHRONIC OBSTRUCTIVE PULMONARY DISEASE
     Route: 065
     Dates: start: 20120110
  2. ALBUTEROL [Concomitant]
     Route: 065
  3. DULERA [Concomitant]
     Route: 065

REACTIONS (2)
  - Dyspnoea [Unknown]
  - Condition aggravated [Unknown]
